FAERS Safety Report 25006623 (Version 1)
Quarter: 2025Q1

REPORT INFORMATION
  Report Type: Report from Study
  Country: CA (occurrence: CA)
  Receive Date: 20250225
  Receipt Date: 20250225
  Transmission Date: 20250408
  Serious: Yes (Other)
  Sender: ABBVIE
  Company Number: CA-ABBVIE-6145986

PATIENT
  Sex: Male

DRUGS (1)
  1. RINVOQ [Suspect]
     Active Substance: UPADACITINIB
     Indication: Colitis ulcerative
     Dosage: TAKE 1 TABLET (15MG) ORALLY ONCE DAILY
     Route: 048
     Dates: start: 20231111, end: 202502

REACTIONS (2)
  - Sepsis [Unknown]
  - Localised infection [Unknown]
